FAERS Safety Report 5287045-7 (Version None)
Quarter: 2007Q1

REPORT INFORMATION
  Report Type: 
  Country: None (occurrence: None)
  Receive Date: 20070330
  Receipt Date: 20070320
  Transmission Date: 20070707
  Serious: Yes (Hospitalization)
  Sender: FDA-Public Use
  Company Number: 238573

PATIENT
  Age: 58 Year
  Sex: Female
  Weight: 66.8 kg

DRUGS (15)
  1. AVASTIN [Suspect]
     Indication: BREAST CANCER METASTATIC
     Dosage: 10 MG/KG, DAYS 1+15, INTRAVENOUS
     Route: 042
     Dates: start: 20061227, end: 20070117
  2. GEMCITABINE [Suspect]
     Indication: BREAST CANCER METASTATIC
     Dosage: 1500 MG/M2, DAYS 1+15, INTRAVENOUS
     Route: 042
     Dates: start: 20061207, end: 20070131
  3. PACLITAXEL [Suspect]
     Indication: BREAST CANCER METASTATIC
     Dosage: 90 MG/M2, DAYS 1,8,15, INTRAVENOUS
     Route: 042
     Dates: start: 20061207, end: 20070207
  4. LIPITOR [Concomitant]
  5. TOPROL-XL [Concomitant]
  6. HYDROCHLOROTHIAZIDE [Concomitant]
  7. TRICOR [Concomitant]
  8. MULTIVITAMIN (MULTIVITAMINS NOS) [Concomitant]
  9. POTASSIUM (POTASSIUM NOS) [Concomitant]
  10. GLUCOSAMINE (GLUCOSAMINE) [Concomitant]
  11. PROCRIT [Concomitant]
  12. CLARITIN-D [Concomitant]
  13. LEXAPRO [Concomitant]
  14. SENNA (SENNA) [Concomitant]
  15. IMIPENEM (IMIPENEM) [Concomitant]

REACTIONS (14)
  - ASTHENIA [None]
  - BALANCE DISORDER [None]
  - BLOOD CULTURE POSITIVE [None]
  - COORDINATION ABNORMAL [None]
  - ESCHERICHIA INFECTION [None]
  - FALL [None]
  - FATIGUE [None]
  - FUSOBACTERIUM INFECTION [None]
  - LEUKOCYTOSIS [None]
  - MYOPATHY TOXIC [None]
  - MYOSITIS [None]
  - NEUROLOGICAL EXAMINATION ABNORMAL [None]
  - PEPTOSTREPTOCOCCUS INFECTION [None]
  - PYREXIA [None]
